FAERS Safety Report 9160911 (Version 1)
Quarter: 2013Q1

REPORT INFORMATION
  Report Type: Spontaneous
  Country: US (occurrence: None)
  Receive Date: 20130215
  Receipt Date: 20130215
  Transmission Date: 20140127
  Serious: Yes (Hospitalization)
  Sender: FDA-Public Use
  Company Number: ACO_34163_2013

PATIENT
  Age: 68 Year
  Sex: Female

DRUGS (10)
  1. AMPYRA (DALFAMPRIDINE) TABLET, 10MG [Suspect]
     Indication: MULTIPLE SCLEROSIS
     Route: 048
  2. PANTOPRAZOLE (PANTOPRAZOLE SODIUM SESQUIHYDRATE) [Concomitant]
  3. ROPINIROLE (ROPINIROLE) [Concomitant]
  4. PATANASE (OLOPATADINE HYDROCHLORIDE) [Concomitant]
  5. CLONAZEPAM (CLONAZEPAM) (CLONAZEPAM) [Concomitant]
  6. FLONASE (FLUTICASONE PROPIONATE) [Concomitant]
  7. FLOVENT (FLUTICASONE PROPIONATE) [Concomitant]
  8. ADVAIR (FLUTICASONE PROPIONATE, SALMETEROL XINAFOATE) [Concomitant]
  9. MONTELUKAST [Concomitant]
  10. IPRATROPIUM (IPRATROPIUM) [Concomitant]

REACTIONS (4)
  - Pulmonary thrombosis [None]
  - Thrombosis [None]
  - Chronic sinusitis [None]
  - Headache [None]
